FAERS Safety Report 9955998 (Version 1)
Quarter: 2014Q1

REPORT INFORMATION
  Report Type: Report from Study
  Country: US (occurrence: US)
  Receive Date: 20140304
  Receipt Date: 20140304
  Transmission Date: 20141002
  Serious: No
  Sender: FDA-Public Use
  Company Number: US-ABBVIE-13P-163-1090029-00

PATIENT
  Age: 81 Year
  Sex: Female

DRUGS (11)
  1. HUMIRA [Suspect]
     Indication: CROHN^S DISEASE
     Dates: start: 20130131
  2. WARFARIN [Concomitant]
     Indication: ANTICOAGULANT THERAPY
  3. METOPROLOL [Concomitant]
     Indication: HYPERTENSION
  4. METOPROLOL [Concomitant]
     Indication: HEART RATE IRREGULAR
  5. LISINOPRIL [Concomitant]
     Indication: HYPERTENSION
  6. LISINOPRIL [Concomitant]
     Indication: HEART RATE IRREGULAR
  7. LANOXIN [Concomitant]
     Indication: HYPERTENSION
  8. LANOXIN [Concomitant]
     Indication: HEART RATE IRREGULAR
  9. HYDROCHLOROTHIAZIDE [Concomitant]
     Indication: HYPERTENSION
  10. FUROSEMIDE [Concomitant]
     Indication: HYPERTENSION
  11. LEVOTHYROXINE [Concomitant]
     Indication: HYPOTHYROIDISM

REACTIONS (1)
  - Injection site erythema [Recovered/Resolved]
